FAERS Safety Report 12771219 (Version 1)
Quarter: 2016Q3

REPORT INFORMATION
  Report Type: Spontaneous
  Country: US (occurrence: US)
  Receive Date: 20160921
  Receipt Date: 20160921
  Transmission Date: 20161109
  Serious: Yes (Life-Threatening, Disabling)
  Sender: FDA-Public Use
  Company Number: None

PATIENT
  Age: 63 Year
  Sex: Male
  Weight: 113.85 kg

DRUGS (8)
  1. ZOLOFT [Concomitant]
     Active Substance: SERTRALINE HYDROCHLORIDE
  2. AMBIEN [Concomitant]
     Active Substance: ZOLPIDEM TARTRATE
  3. ASPRIN [Concomitant]
     Active Substance: ASPIRIN
  4. ADDERAL HCTZ [Concomitant]
  5. DEPO TESTOSTERONE INJ [Suspect]
     Active Substance: TESTOSTERONE
     Indication: BLOOD TESTOSTERONE DECREASED
     Dosage: OTHER STRENGTH:;OTHER DOSE:;OTHER FREQUENCY:EVERY 3 WEEKS;OTHER ROUTE:
     Route: 030
     Dates: start: 20150801, end: 20160813
  6. C [Concomitant]
  7. MOTRIN [Concomitant]
     Active Substance: IBUPROFEN
  8. MULTI VIT [Concomitant]

REACTIONS (6)
  - Injection site erythema [None]
  - Pulmonary oedema [None]
  - Burning sensation [None]
  - Cough [None]
  - Asthma [None]
  - Swelling [None]

NARRATIVE: CASE EVENT DATE: 20160823
